FAERS Safety Report 6535614-6 (Version None)
Quarter: 2010Q1

REPORT INFORMATION
  Report Type: 
  Country: None (occurrence: None)
  Receive Date: 20100113
  Receipt Date: 20100106
  Transmission Date: 20100710
  Serious: Yes (Other)
  Sender: FDA-Public Use
  Company Number: PHHY2010CA00675

PATIENT

DRUGS (3)
  1. DIOVAN [Suspect]
  2. DIURETICS [Concomitant]
  3. BETA BLOCKING AGENTS [Concomitant]

REACTIONS (1)
  - CORONARY ARTERY BYPASS [None]
